FAERS Safety Report 11528806 (Version 1)
Quarter: 2015Q3

REPORT INFORMATION
  Report Type: Spontaneous
  Country: US (occurrence: None)
  Receive Date: 20150918
  Receipt Date: 20150918
  Transmission Date: 20151125
  Serious: Yes (Other)
  Sender: FDA-Public Use
  Company Number: None

PATIENT
  Age: 55 Year
  Sex: Male
  Weight: 101.15 kg

DRUGS (4)
  1. HYDROCODON-ACETAMINOPHEN 10-325 AUROBINDO PHARMA [Suspect]
     Active Substance: ACETAMINOPHEN\HYDROCODONE
     Indication: PROCEDURAL PAIN
     Dosage: 1-2 TABLETS EVERY 4 HOURS
     Route: 048
     Dates: start: 20150916
  2. DILTIAZEM HCL TRADE NAME CARIZEM SR [Concomitant]
  3. HYDROCODONE BIT/ACETAMINOPHEN TRADE NAME NORCO [Concomitant]
  4. TYLENOL PM [Concomitant]
     Active Substance: ACETAMINOPHEN\DIPHENHYDRAMINE

REACTIONS (10)
  - Product quality issue [None]
  - Abasia [None]
  - Product formulation issue [None]
  - Drug effect decreased [None]
  - Abdominal pain upper [None]
  - Back pain [None]
  - Musculoskeletal chest pain [None]
  - Abdominal discomfort [None]
  - Nausea [None]
  - Product substitution issue [None]

NARRATIVE: CASE EVENT DATE: 20150916
